FAERS Safety Report 7539738-6 (Version None)
Quarter: 2011Q2

REPORT INFORMATION
  Report Type: 
  Country: None (occurrence: None)
  Receive Date: 20110610
  Receipt Date: 20110603
  Transmission Date: 20111010
  Serious: Yes (Death, Life-Threatening)
  Sender: FDA-Public Use
  Company Number: GB-PFIZER INC-2011033035

PATIENT
  Age: 71 Year
  Sex: Male
  Weight: 87.1 kg

DRUGS (12)
  1. ELANTAN ^SANOL-ARZNEIMITTEL^ [Concomitant]
     Indication: MYOCARDIAL ISCHAEMIA
     Dosage: 50 MG, DAILY
     Dates: start: 19970908
  2. SOMATROPIN [Suspect]
     Indication: HYPOPITUITARISM
     Dosage: 0.1 MG, 1X/DAY (7 INJECTIONS PER WEEK)
     Dates: start: 19970318
  3. SUSTANON [Concomitant]
     Indication: HYPOGONADISM MALE
  4. SUSTANON [Concomitant]
     Indication: BLOOD FOLLICLE STIMULATING HORMONE DECREASED
  5. DESMOPRESSIN [Concomitant]
     Indication: BLOOD ANTIDIURETIC HORMONE DECREASED
     Dosage: 0.2 UG, UNK
     Dates: start: 19870101
  6. POTASSIUM [Concomitant]
     Indication: HYPOKALAEMIA
     Dosage: 100 UG,DAILY
     Dates: start: 19990701
  7. SUSTANON [Concomitant]
     Indication: BLOOD LUTEINISING HORMONE DECREASED
     Dosage: 250 MG, UNK
     Dates: start: 19890101
  8. HYDROCORTISONE [Concomitant]
     Indication: BLOOD CORTICOTROPHIN DECREASED
     Dosage: 30 MG, UNK
     Dates: start: 19880101
  9. NICORANDIL [Concomitant]
     Indication: MYOCARDIAL ISCHAEMIA
     Dosage: 10 MG, UNK
     Dates: start: 19970908
  10. FUROSEMIDE [Concomitant]
     Indication: LEFT VENTRICULAR FAILURE
     Dosage: 40 MG, DAILY
     Dates: start: 19971101
  11. ATENOLOL [Concomitant]
     Indication: ESSENTIAL HYPERTENSION
     Dosage: 50 MG, DALIY
     Dates: start: 19960901
  12. BENDROFLUAZIDE [Concomitant]
     Indication: ESSENTIAL HYPERTENSION
     Dosage: 2.5 MG, DAILY
     Dates: start: 19950901

REACTIONS (4)
  - ARTERIOSCLEROSIS CORONARY ARTERY [None]
  - INTRACARDIAC THROMBUS [None]
  - RENAL FAILURE CHRONIC [None]
  - MYOCARDIAL ISCHAEMIA [None]
